FAERS Safety Report 8844323 (Version 2)
Quarter: 2012Q4

REPORT INFORMATION
  Report Type: 
  Country: US (occurrence: None)
  Receive Date: 20121016
  Receipt Date: 20121102
  Transmission Date: 20130627
  Serious: No
  Sender: FDA-Public Use
  Company Number: None

PATIENT
  Age: 26 Year
  Sex: Female

DRUGS (1)
  1. CARDIOPLEGIA SOLUTION [Suspect]

REACTIONS (5)
  - Aspergillosis [None]
  - Skin mass [None]
  - Central nervous system lesion [None]
  - Cerebral haemorrhage [None]
  - Hemiparesis [None]
